FAERS Safety Report 15347596 (Version 1)
Quarter: 2018Q3

REPORT INFORMATION
  Report Type: Spontaneous
  Country: JP (occurrence: JP)
  Receive Date: 20180904
  Receipt Date: 20180904
  Transmission Date: 20181010
  Serious: Yes (Hospitalization, Other)
  Sender: FDA-Public Use
  Company Number: JP-ELI_LILLY_AND_COMPANY-JP201808013049

PATIENT
  Age: 67 Year
  Sex: Male

DRUGS (2)
  1. PACLITAXEL. [Concomitant]
     Active Substance: PACLITAXEL
     Indication: GASTRIC CANCER
     Dosage: UNK
     Route: 042
     Dates: start: 20160104, end: 20160304
  2. CYRAMZA [Suspect]
     Active Substance: RAMUCIRUMAB
     Indication: GASTRIC CANCER
     Dosage: UNK
     Route: 042
     Dates: start: 20160104, end: 20160304

REACTIONS (5)
  - Pulmonary embolism [Unknown]
  - Malignant neoplasm progression [Unknown]
  - Altered state of consciousness [Unknown]
  - General physical health deterioration [Unknown]
  - Decreased appetite [Unknown]

NARRATIVE: CASE EVENT DATE: 20160304
